FAERS Safety Report 12720622 (Version 1)
Quarter: 2016Q3

REPORT INFORMATION
  Report Type: Spontaneous
  Country: US (occurrence: US)
  Receive Date: 20160907
  Receipt Date: 20160907
  Transmission Date: 20161109
  Serious: No
  Sender: FDA-Public Use
  Company Number: US-TEVA-676330USA

PATIENT

DRUGS (1)
  1. TRISENOX [Suspect]
     Active Substance: ARSENIC TRIOXIDE

REACTIONS (1)
  - Laboratory test interference [Unknown]
